FAERS Safety Report 18284568 (Version 2)
Quarter: 2020Q4

REPORT INFORMATION
  Report Type: Spontaneous
  Country: DE (occurrence: DE)
  Receive Date: 20200919
  Receipt Date: 20201109
  Transmission Date: 20210113
  Serious: Yes (Hospitalization, Other)
  Sender: FDA-Public Use
  Company Number: DE-AUROBINDO-AUR-APL-2020-048208

PATIENT
  Age: 15 Year
  Sex: Female
  Weight: 45 kg

DRUGS (3)
  1. IBUPROFEN FILM-COATED TABLETS [Suspect]
     Active Substance: IBUPROFEN
     Indication: PRODUCT USED FOR UNKNOWN INDICATION
     Dosage: 2 DOSAGE FORM, 1 TOTAL,DAILY DOSE: 2 DF DOSAGE FORM EVERY TOTAL
     Route: 048
     Dates: start: 20200220
  2. INTUNIV [Suspect]
     Active Substance: GUANFACINE HYDROCHLORIDE
     Indication: PRODUCT USED FOR UNKNOWN INDICATION
     Dosage: 2 MILLIGRAM,26 TOTAL,DAILY DOSE: 2 MG MILLGRAM(S) EVERY 26 TOTAL
     Route: 048
     Dates: start: 20200220
  3. ZONISAMIDE. [Suspect]
     Active Substance: ZONISAMIDE
     Indication: PRODUCT USED FOR UNKNOWN INDICATION
     Dosage: 100 MILLIGRAM,39 TOTAL,DAILY DOSE: 100 MG MILLGRAM(S) EVERY 39 TOTAL
     Route: 048
     Dates: start: 20200220

REACTIONS (8)
  - Hypotension [Recovered/Resolved]
  - Sinus arrhythmia [Recovered/Resolved]
  - Vomiting [Recovered/Resolved]
  - Metabolic acidosis [Recovered/Resolved]
  - Bradycardia [Recovered/Resolved]
  - Somnolence [Recovered/Resolved]
  - Hypokalaemia [Recovered/Resolved]
  - Intentional overdose [Recovered/Resolved]

NARRATIVE: CASE EVENT DATE: 20200220
